FAERS Safety Report 9078959 (Version 1)
Quarter: 2013Q1

REPORT INFORMATION
  Report Type: Spontaneous
  Country: ES (occurrence: ES)
  Receive Date: 20130215
  Receipt Date: 20130215
  Transmission Date: 20140127
  Serious: Yes (Hospitalization, Other)
  Sender: FDA-Public Use
  Company Number: ES-OTSUKA-EU-2013-10041

PATIENT
  Age: 88 Year
  Sex: Female

DRUGS (6)
  1. EKISTOL [Suspect]
     Dosage: 200 MG MILLIGRAM(S), DAILY DOSE
     Route: 048
     Dates: start: 2011, end: 20120604
  2. PRAVASTATIN [Suspect]
     Indication: HYPERLIPIDAEMIA
     Dosage: 20 MG MILLIGRAM(S), DAILY DOSE
     Route: 048
     Dates: start: 2011, end: 20120604
  3. ALDOCUMAR [Suspect]
     Dosage: UNK, UNKNOWN
     Route: 048
     Dates: start: 2010, end: 20120604
  4. ENALAPRIL [Concomitant]
     Indication: HYPERTENSION
     Dosage: 5 MG MILLIGRAM(S), DAILY DOSE
     Route: 048
     Dates: start: 2009, end: 20120604
  5. RISEDRONATE SODIUM [Concomitant]
     Indication: OSTEOPOROSIS
     Dosage: 35 MG MILLIGRAM(S), DAILY DOSE
     Route: 048
     Dates: start: 2007, end: 20120604
  6. NOLOTIL [Concomitant]
     Indication: PAIN
     Dosage: 4 G GRAM(S), DAILY DOSE
     Route: 048
     Dates: start: 2010, end: 20120604

REACTIONS (5)
  - Abdominal wall haematoma [Recovering/Resolving]
  - Drug interaction [Recovering/Resolving]
  - Abdominal distension [Unknown]
  - Abdominal wall haemorrhage [Unknown]
  - Abdominal pain [Unknown]
